FAERS Safety Report 5126846-2 (Version None)
Quarter: 2006Q4

REPORT INFORMATION
  Report Type: 
  Country: None (occurrence: None)
  Receive Date: 20061013
  Receipt Date: 20060929
  Transmission Date: 20070319
  Serious: Yes (Death)
  Sender: FDA-Public Use
  Company Number: US-AMGEN-US195316

PATIENT
  Sex: Male

DRUGS (3)
  1. ENBREL [Suspect]
     Indication: RHEUMATOID ARTHRITIS
  2. REMICADE [Suspect]
     Route: 042
     Dates: start: 20050601, end: 20051201
  3. CELEBREX [Concomitant]

REACTIONS (4)
  - HEPATIC NEOPLASM MALIGNANT [None]
  - POST PROCEDURAL COMPLICATION [None]
  - RESPIRATORY FAILURE [None]
  - SURGERY [None]
